FAERS Safety Report 4544468-9 (Version None)
Quarter: 2005Q1

REPORT INFORMATION
  Report Type: 
  Country: None (occurrence: None)
  Receive Date: 20050103
  Receipt Date: 20050103
  Transmission Date: 20050727
  Serious: No
  Sender: FDA-Public Use
  Company Number: None

PATIENT
  Age: 53 Year
  Sex: Female
  Weight: 86.1834 kg

DRUGS (2)
  1. BEXTRA [Suspect]
     Indication: STEVENS-JOHNSON SYNDROME
     Dates: start: 20040921, end: 20040927
  2. CORTISONE [Concomitant]

REACTIONS (2)
  - MEDICATION ERROR [None]
  - STEVENS-JOHNSON SYNDROME [None]
